FAERS Safety Report 7760985-2 (Version None)
Quarter: 2011Q3

REPORT INFORMATION
  Report Type: 
  Country: None (occurrence: None)
  Receive Date: 20110920
  Receipt Date: 20110913
  Transmission Date: 20111222
  Serious: Yes (Hospitalization)
  Sender: FDA-Public Use
  Company Number: US-BIOGENIDEC-2011BI030156

PATIENT
  Age: 55 Year
  Sex: Female

DRUGS (1)
  1. TYSABRI [Suspect]
     Indication: MULTIPLE SCLEROSIS
     Route: 042
     Dates: start: 20070202, end: 20110428

REACTIONS (6)
  - GASTROENTERITIS VIRAL [None]
  - HYPERKERATOSIS [None]
  - CELLULITIS [None]
  - DEVICE DISLOCATION [None]
  - OPEN WOUND [None]
  - MEMORY IMPAIRMENT [None]
